FAERS Safety Report 16544540 (Version 1)
Quarter: 2019Q3

REPORT INFORMATION
  Report Type: Report from Study
  Country: None (occurrence: AU)
  Receive Date: 20190709
  Receipt Date: 20190709
  Transmission Date: 20191004
  Serious: Yes (Other)
  Sender: FDA-Public Use
  Company Number: AU-ABBVIE-19K-008-2844266-00

PATIENT
  Sex: Male

DRUGS (1)
  1. LUCRIN DEPOT [Suspect]
     Active Substance: LEUPROLIDE ACETATE
     Indication: PROSTATE CANCER
     Route: 030
     Dates: start: 2012

REACTIONS (5)
  - Neuropathy peripheral [Not Recovered/Not Resolved]
  - Intervertebral disc degeneration [Not Recovered/Not Resolved]
  - Metastasis [Not Recovered/Not Resolved]
  - Arthritis [Not Recovered/Not Resolved]
  - Lipoatrophy [Not Recovered/Not Resolved]

NARRATIVE: CASE EVENT DATE: 2018
